FAERS Safety Report 8164060-7 (Version None)
Quarter: 2012Q1

REPORT INFORMATION
  Report Type: 
  Country: None (occurrence: None)
  Receive Date: 20120221
  Receipt Date: 20120208
  Transmission Date: 20120608
  Serious: Yes (Death, Hospitalization, Other)
  Sender: FDA-Public Use
  Company Number: 1000025398

PATIENT
  Age: 72 Year
  Sex: Female
  Weight: 103 kg

DRUGS (10)
  1. AMLODIPINE [Concomitant]
  2. MIRTAZAPINE [Suspect]
     Indication: SCHIZOAFFECTIVE DISORDER
     Dosage: 30 MG (30 MG, 1IN 1 D),ORAL
     Route: 048
     Dates: end: 20111023
  3. FRAGMIN (DALTEPARIN SODIUM)(DALTEPARIN SODIUM) [Concomitant]
  4. ESCITALOPRAM OXALATE [Suspect]
     Indication: SCHIZOAFFECTIVE DISORDER
     Dosage: 30 MG (30 MG, 1 IN 1 D),ORAL
     Route: 048
     Dates: end: 20111023
  5. FERRO DURETTER(FERROUS SULFATE)(FERROUS SULFATE) [Concomitant]
  6. ALPRAZOLAM [Concomitant]
  7. ZIPRASIDONE HYDROCHLORIDE [Suspect]
     Indication: SCHIZOAFFECTIVE DISORDER
     Dosage: 80 MG (40 MG, 2 IN 1 D)
     Dates: end: 20111023
  8. LITHIUM CITRATE [Suspect]
     Indication: SCHIZOAFFECTIVE DISORDER
     Dosage: ORAL
     Route: 048
     Dates: end: 20111023
  9. CENTYL MED KALIUMKLORID(BENDROFLUMETHAZIDE, POTASSIUM CHLORIDE)(BENDRO [Concomitant]
  10. FURIX (FUROSEMIDE) (FUROSEMIDE) [Concomitant]

REACTIONS (21)
  - CARDIAC DISORDER [None]
  - DYSPNOEA [None]
  - LACTIC ACIDOSIS [None]
  - CARDIAC ENZYMES INCREASED [None]
  - FALL [None]
  - HEPATIC ENZYME INCREASED [None]
  - HEPATIC CIRRHOSIS [None]
  - LIVER DISORDER [None]
  - HYPERTENSION [None]
  - MULTI-ORGAN FAILURE [None]
  - HUMERUS FRACTURE [None]
  - URINARY TRACT INFECTION [None]
  - LACUNAR INFARCTION [None]
  - NEUROLEPTIC MALIGNANT SYNDROME [None]
  - CONSTIPATION [None]
  - INFARCTION [None]
  - SEROTONIN SYNDROME [None]
  - RHABDOMYOLYSIS [None]
  - RENAL FAILURE ACUTE [None]
  - DEPRESSED LEVEL OF CONSCIOUSNESS [None]
  - CARDIAC HYPERTROPHY [None]
